FAERS Safety Report 9729122 (Version 1)
Quarter: 2013Q4

REPORT INFORMATION
  Report Type: Spontaneous
  Country: US (occurrence: US)
  Receive Date: 20131204
  Receipt Date: 20131204
  Transmission Date: 20140711
  Serious: Yes (Other)
  Sender: FDA-Public Use
  Company Number: US-BAYER-2013-145675

PATIENT
  Age: 41 Year
  Sex: Female
  Weight: 101.13 kg

DRUGS (27)
  1. YAZ [Suspect]
  2. ALBUTEROL [Concomitant]
  3. ATROVENT [Concomitant]
  4. PHENERGAN [Concomitant]
  5. ZYPREXA [Concomitant]
  6. VITAMIN D [Concomitant]
  7. TRAZODONE [Concomitant]
     Dosage: 50 MG, UNK
  8. TESSALON PERLES [Concomitant]
  9. ACID REDUCER [Concomitant]
  10. AUGMENTIN [Concomitant]
     Dosage: 500 MG, BID
  11. AMOXIC+A-CLAV.GI K [Concomitant]
     Dosage: 875-125
  12. PROMETHAZINE W/CODEINE [Concomitant]
  13. DECADRON [Concomitant]
     Route: 030
  14. PEPCID [Concomitant]
     Dosage: 40 MG, UNK
  15. AVELOX [Concomitant]
     Dosage: 400 MG, UNK
  16. REGLAN [Concomitant]
  17. PYRIDIUM [Concomitant]
  18. MACROBID [Concomitant]
     Dosage: 100 MG, UNK
  19. PHENAZOPYRIDINE [Concomitant]
     Dosage: 200 MG, UNK
  20. SINGULAIR [Concomitant]
     Dosage: 10 MG, UNK
  21. NIZATIDINE [Concomitant]
     Dosage: 150 MG, UNK
  22. ABILIFY [Concomitant]
     Dosage: 5 MG, DAILY
  23. ABILIFY [Concomitant]
     Dosage: 10 MG, UNK
  24. LEXAPRO [Concomitant]
     Dosage: 10 MG, DAILY
  25. TOPIRAMATE [Concomitant]
     Dosage: 50 MG, UNK
  26. SYNTHROID [Concomitant]
  27. PROTONIX [Concomitant]

REACTIONS (3)
  - Thrombophlebitis [None]
  - Pain in extremity [None]
  - Nerve injury [None]
